APPROVED DRUG PRODUCT: OMEPRAZOLE
Active Ingredient: OMEPRAZOLE
Strength: 10MG
Dosage Form/Route: CAPSULE, DELAYED REL PELLETS;ORAL
Application: A075876 | Product #001
Applicant: STRIDES PHARMA GLOBAL PTE LTD
Approved: May 29, 2003 | RLD: No | RS: No | Type: DISCN